FAERS Safety Report 12876002 (Version 1)
Quarter: 2016Q4

REPORT INFORMATION
  Report Type: Spontaneous
  Country: DE (occurrence: DE)
  Receive Date: 20161024
  Receipt Date: 20161024
  Transmission Date: 20170207
  Serious: Yes (Hospitalization, Other)
  Sender: FDA-Public Use
  Company Number: DE-JAZZ-2016-DE-015618

PATIENT
  Sex: Female

DRUGS (1)
  1. XYREM [Suspect]
     Active Substance: SODIUM OXYBATE
     Indication: PRODUCT USED FOR UNKNOWN INDICATION
     Dosage: 90000 MG, UNK
     Route: 048
     Dates: start: 20160810, end: 20160810

REACTIONS (4)
  - Intentional product use issue [Unknown]
  - Drug interaction [Unknown]
  - Loss of consciousness [Unknown]
  - Overdose [Unknown]

NARRATIVE: CASE EVENT DATE: 20160810
